FAERS Safety Report 4935282-0 (Version None)
Quarter: 2006Q1

REPORT INFORMATION
  Report Type: 
  Country: None (occurrence: None)
  Receive Date: 20060307
  Receipt Date: 20050311
  Transmission Date: 20060701
  Serious: Yes (Hospitalization)
  Sender: FDA-Public Use
  Company Number: FR-BRISTOL-MYERS SQUIBB COMPANY-12896916

PATIENT
  Age: 74 Year
  Sex: Male

DRUGS (5)
  1. SINEMET [Suspect]
     Indication: PARKINSON'S DISEASE
     Route: 048
     Dates: end: 20050113
  2. LASILIX [Concomitant]
     Indication: RENAL FAILURE CHRONIC
     Dates: end: 20050113
  3. TRIVASTAL [Concomitant]
     Indication: PARKINSON'S DISEASE
  4. MEDIATENSYL [Concomitant]
  5. ATACAND [Concomitant]
     Indication: HYPERTENSION
     Dates: end: 20050104

REACTIONS (4)
  - ACUTE RESPIRATORY DISTRESS SYNDROME [None]
  - HYPOTHERMIA [None]
  - LEUKOPENIA [None]
  - THROMBOCYTOPENIA [None]
